FAERS Safety Report 4405637-1 (Version None)
Quarter: 2004Q3

REPORT INFORMATION
  Report Type: 
  Country: None (occurrence: None)
  Receive Date: 20040723
  Receipt Date: 20031027
  Transmission Date: 20050211
  Serious: No
  Sender: FDA-Public Use
  Company Number: US-GLAXOSMITHKLINE-A0431745A

PATIENT
  Sex: Male

DRUGS (8)
  1. AVANDIA [Suspect]
     Dosage: 4MG PER DAY
     Route: 048
     Dates: start: 20031020
  2. GLUCOPHAGE [Concomitant]
  3. GLUCOTROL [Concomitant]
  4. LOZOL [Concomitant]
  5. CARDURA [Concomitant]
  6. TIAZAC [Concomitant]
  7. ANDROGEL [Concomitant]
  8. CATAPRES [Concomitant]

REACTIONS (1)
  - RASH [None]
